FAERS Safety Report 10274747 (Version 1)
Quarter: 2014Q3

REPORT INFORMATION
  Report Type: Spontaneous
  Country: BR (occurrence: BR)
  Receive Date: 20140702
  Receipt Date: 20140702
  Transmission Date: 20150326
  Serious: Yes (Other)
  Sender: FDA-Public Use
  Company Number: BR-ABBVIE-14P-020-1255345-00

PATIENT
  Sex: Female

DRUGS (4)
  1. SIBLIMA [Concomitant]
     Indication: CONTRACEPTION
     Dosage: AT NIGHT: DAILY DOSE: 1 TABLET
     Route: 048
  2. DEPAKOTE ER [Suspect]
     Active Substance: DIVALPROEX SODIUM
  3. DEPAKOTE ER [Suspect]
     Active Substance: DIVALPROEX SODIUM
     Indication: BIPOLAR DISORDER
     Dates: end: 201406
  4. DEPAKOTE ER [Suspect]
     Active Substance: DIVALPROEX SODIUM
     Dosage: AT NIGHT (AT 10:00 P.M OR 10:30 P.M): DAILY DOSE; 750 MG
     Dates: start: 201406

REACTIONS (10)
  - Irritability [Recovering/Resolving]
  - Insomnia [Recovering/Resolving]
  - Aggression [Recovering/Resolving]
  - Agitation [Recovering/Resolving]
  - Anxiety [Recovering/Resolving]
  - Mood swings [Recovering/Resolving]
  - Partner stress [Not Recovered/Not Resolved]
  - Bipolar disorder [Recovering/Resolving]
  - Mood altered [Recovering/Resolving]
  - Weight decreased [Not Recovered/Not Resolved]

NARRATIVE: CASE EVENT DATE: 2014
